FAERS Safety Report 4703991-4 (Version None)
Quarter: 2005Q2

REPORT INFORMATION
  Report Type: 
  Country: None (occurrence: None)
  Receive Date: 20050628
  Receipt Date: 20050613
  Transmission Date: 20051028
  Serious: Yes (Disabling)
  Sender: FDA-Public Use
  Company Number: USA0506100301

PATIENT
  Age: 60 Year
  Sex: Female

DRUGS (8)
  1. HUMULIN R [Suspect]
     Indication: DIABETES MELLITUS
     Dates: start: 19850101
  2. LANTUS [Concomitant]
  3. ALTACE [Concomitant]
  4. ZETIA [Concomitant]
  5. CLONAZEPAM [Concomitant]
  6. LITHIUM CARBONATE [Concomitant]
  7. SEROQUEL [Concomitant]
  8. DETROL LA (TOLTREODINE L-TARTRATE) [Concomitant]

REACTIONS (3)
  - BIPOLAR DISORDER [None]
  - NEUROGENIC BLADDER [None]
  - WEIGHT INCREASED [None]
